FAERS Safety Report 22184750 (Version 1)
Quarter: 2023Q2

REPORT INFORMATION
  Report Type: Spontaneous
  Country: US (occurrence: None)
  Receive Date: 20230407
  Receipt Date: 20230407
  Transmission Date: 20230721
  Serious: No
  Sender: FDA-Public Use
  Company Number: US-Melinta Therapeutics, LLC-US-MLNT-23-00005

PATIENT
  Age: 42 Year
  Sex: Male

DRUGS (6)
  1. KIMYRSA [Suspect]
     Active Substance: ORITAVANCIN DIPHOSPHATE
     Indication: Staphylococcal infection
     Route: 041
     Dates: start: 20221019, end: 20221019
  2. KIMYRSA [Suspect]
     Active Substance: ORITAVANCIN DIPHOSPHATE
     Indication: Osteomyelitis
     Dosage: 50 CC OF THE 250 INFUSION
     Route: 041
     Dates: start: 20221102, end: 20221102
  3. KIMYRSA [Suspect]
     Active Substance: ORITAVANCIN DIPHOSPHATE
     Dosage: NOT PROVIDED
     Route: 041
     Dates: start: 20221108, end: 20221108
  4. BENADRYL [Concomitant]
     Active Substance: DIPHENHYDRAMINE HYDROCHLORIDE
     Indication: Premedication
     Route: 048
     Dates: start: 20221019, end: 20221019
  5. BENADRYL [Concomitant]
     Active Substance: DIPHENHYDRAMINE HYDROCHLORIDE
     Route: 048
     Dates: start: 20221102, end: 20221102
  6. BENADRYL [Concomitant]
     Active Substance: DIPHENHYDRAMINE HYDROCHLORIDE
     Route: 048
     Dates: start: 20221108, end: 20221108

REACTIONS (8)
  - Back pain [Recovered/Resolved]
  - Chills [Recovered/Resolved]
  - Infusion related reaction [Recovered/Resolved]
  - Chills [Recovered/Resolved]
  - Back pain [Recovered/Resolved]
  - Infusion related reaction [Recovered/Resolved]
  - Multiple use of single-use product [Recovered/Resolved]
  - Off label use [Recovered/Resolved]

NARRATIVE: CASE EVENT DATE: 20221102
